FAERS Safety Report 19905943 (Version 1)
Quarter: 2021Q3

REPORT INFORMATION
  Report Type: Spontaneous
  Country: US (occurrence: US)
  Receive Date: 20210930
  Receipt Date: 20210930
  Transmission Date: 20211014
  Serious: Yes (Life-Threatening, Hospitalization)
  Sender: FDA-Public Use
  Company Number: None

PATIENT
  Age: 56 Year
  Sex: Male

DRUGS (1)
  1. ERLOTINIB TAB 150MG [Suspect]
     Active Substance: ERLOTINIB
     Route: 048
     Dates: start: 202107

REACTIONS (3)
  - Rash [None]
  - Drug interaction [None]
  - Pulmonary thrombosis [None]

NARRATIVE: CASE EVENT DATE: 20210901
